FAERS Safety Report 25989407 (Version 1)
Quarter: 2025Q4

REPORT INFORMATION
  Report Type: Spontaneous
  Country: US (occurrence: US)
  Receive Date: 20251103
  Receipt Date: 20251103
  Transmission Date: 20260118
  Serious: No
  Sender: PFIZER
  Company Number: US-PFIZER INC-PV202500014514

PATIENT
  Age: 70 Year
  Sex: Male

DRUGS (3)
  1. BRAFTOVI [Suspect]
     Active Substance: ENCORAFENIB
     Indication: Hepatocellular carcinoma
     Dosage: 300 MG, DAILY (4 CAPS ORAL DAILY)
     Route: 048
  2. BRAFTOVI [Suspect]
     Active Substance: ENCORAFENIB
     Dosage: 75 MG
  3. CARDURA [Concomitant]
     Active Substance: DOXAZOSIN MESYLATE
     Dosage: 2 MG, 1X/DAY (1 TAB ORAL NIGHTLY (BEDTIME))
     Route: 048

REACTIONS (3)
  - Laboratory test abnormal [Unknown]
  - Illness [Unknown]
  - Off label use [Unknown]
